FAERS Safety Report 21627257 (Version 2)
Quarter: 2022Q4

REPORT INFORMATION
  Report Type: Report from Study
  Country: US (occurrence: US)
  Receive Date: 20221122
  Receipt Date: 20221123
  Transmission Date: 20230113
  Serious: Yes (Other)
  Sender: FDA-Public Use
  Company Number: US-ABBVIE-4208220

PATIENT
  Sex: Female

DRUGS (2)
  1. HUMIRA [Suspect]
     Active Substance: ADALIMUMAB
     Indication: Product used for unknown indication
     Dosage: FORM STRENGTH: 40 MILLIGRAM.
     Route: 058
  2. FENTANYL [Concomitant]
     Active Substance: FENTANYL
     Indication: Product used for unknown indication

REACTIONS (4)
  - Medical procedure [Recovering/Resolving]
  - Intentional product misuse [Recovering/Resolving]
  - Gait disturbance [Unknown]
  - Skin disorder [Recovering/Resolving]

NARRATIVE: CASE EVENT DATE: 20220101
